FAERS Safety Report 22344189 (Version 1)
Quarter: 2023Q2

REPORT INFORMATION
  Report Type: Report from Study
  Country: US (occurrence: US)
  Receive Date: 20230519
  Receipt Date: 20230519
  Transmission Date: 20230722
  Serious: Yes (Other)
  Sender: FDA-Public Use
  Company Number: US-GLAXOSMITHKLINE-US2022021520

PATIENT

DRUGS (18)
  1. NIRAPARIB [Suspect]
     Active Substance: NIRAPARIB
     Indication: Fallopian tube cancer
     Dosage: 200 MG, QD
     Dates: start: 20220204
  2. NIRAPARIB [Suspect]
     Active Substance: NIRAPARIB
     Dosage: 200 MG, QD AT 9PM WITHOUT FOOD
     Route: 048
     Dates: start: 202202
  3. NIRAPARIB [Suspect]
     Active Substance: NIRAPARIB
     Dosage: 100 MG, QD
     Dates: start: 20220328
  4. NIRAPARIB [Suspect]
     Active Substance: NIRAPARIB
     Dosage: 100 MG, QD
  5. NIRAPARIB [Suspect]
     Active Substance: NIRAPARIB
     Dosage: 100 MG, QD
  6. NIRAPARIB [Suspect]
     Active Substance: NIRAPARIB
     Dosage: 100 MG, QD
     Route: 048
  7. POTASSIUM CHLORIDE [Concomitant]
     Active Substance: POTASSIUM CHLORIDE
     Indication: Product used for unknown indication
     Dosage: 10 MEQ, BID
  8. ASPIRIN [Concomitant]
     Active Substance: ASPIRIN
     Indication: Product used for unknown indication
     Dosage: 81 MG, QD
  9. CALCIUM [Concomitant]
     Active Substance: CALCIUM
     Indication: Product used for unknown indication
     Dosage: 600 MG, BID
  10. CALCIUM [Concomitant]
     Active Substance: CALCIUM
     Dosage: 500 MG, BID
  11. ZETIA [Concomitant]
     Active Substance: EZETIMIBE
     Indication: Product used for unknown indication
     Dosage: 10 MG, QD
  12. NEXIUM [Concomitant]
     Active Substance: ESOMEPRAZOLE MAGNESIUM
     Indication: Product used for unknown indication
     Dosage: 40 MG, QD
  13. CIPRO [Concomitant]
     Active Substance: CIPROFLOXACIN HYDROCHLORIDE
     Indication: Product used for unknown indication
     Dosage: UNK
  14. LORATADINE [Concomitant]
     Active Substance: LORATADINE
     Indication: Product used for unknown indication
     Dosage: 10 MG, QD
  15. NIFEDIPINE [Concomitant]
     Active Substance: NIFEDIPINE
     Indication: Blood pressure increased
     Dosage: 30 MG, QD
  16. NIFEDIPINE [Concomitant]
     Active Substance: NIFEDIPINE
     Dosage: 60 MG, QD
  17. NIFEDIPINE [Concomitant]
     Active Substance: NIFEDIPINE
     Dosage: 90 MG, QD
  18. POTASSIUM CHLORIDE [Concomitant]
     Active Substance: POTASSIUM CHLORIDE
     Indication: Product used for unknown indication
     Dosage: 10 MEQ, BID

REACTIONS (14)
  - Urinary tract infection [Recovered/Resolved]
  - Pain [Not Recovered/Not Resolved]
  - Asthenia [Not Recovered/Not Resolved]
  - Nausea [Recovered/Resolved]
  - Constipation [Not Recovered/Not Resolved]
  - Fatigue [Not Recovered/Not Resolved]
  - Taste disorder [Not Recovered/Not Resolved]
  - Decreased activity [Unknown]
  - Blood pressure increased [Recovered/Resolved]
  - Malaise [Not Recovered/Not Resolved]
  - Nervousness [Not Recovered/Not Resolved]
  - Cataract [Unknown]
  - Therapeutic response unexpected [Not Recovered/Not Resolved]
  - Off label use [Not Recovered/Not Resolved]

NARRATIVE: CASE EVENT DATE: 20220201
